FAERS Safety Report 21237909 (Version 2)
Quarter: 2022Q3

REPORT INFORMATION
  Report Type: Other
  Country: PT (occurrence: PT)
  Receive Date: 20220822
  Receipt Date: 20220829
  Transmission Date: 20221027
  Serious: Yes (Other)
  Sender: FDA-Public Use
  Company Number: PT-IPSEN Group, Research and Development-2022-23398

PATIENT

DRUGS (1)
  1. SOMATROPIN [Suspect]
     Active Substance: SOMATROPIN
     Indication: Prader-Willi syndrome
     Dosage: MEAN DOSAGE OF 0.28 PLUS OR MINUS 0.20 MG/M2 /DAY
     Route: 065

REACTIONS (3)
  - Type 2 diabetes mellitus [Unknown]
  - Retinopathy [Unknown]
  - Sleep apnoea syndrome [Unknown]
